FAERS Safety Report 6225065-6 (Version None)
Quarter: 2009Q2

REPORT INFORMATION
  Report Type: 
  Country: None (occurrence: None)
  Receive Date: 20090612
  Receipt Date: 20090403
  Transmission Date: 20091009
  Serious: No
  Sender: FDA-Public Use
  Company Number: US-ABBOTT-09P-163-0566816-00

PATIENT
  Sex: Female

DRUGS (2)
  1. HUMIRA [Suspect]
     Indication: RHEUMATOID ARTHRITIS
  2. ENBREL [Concomitant]
     Indication: RHEUMATOID ARTHRITIS
     Dates: start: 20070101

REACTIONS (2)
  - HYPERSENSITIVITY [None]
  - OEDEMA PERIPHERAL [None]
